FAERS Safety Report 18208007 (Version 1)
Quarter: 2020Q3

REPORT INFORMATION
  Report Type: Spontaneous
  Country: FR (occurrence: FR)
  Receive Date: 20200828
  Receipt Date: 20200828
  Transmission Date: 20201103
  Serious: Yes (Other)
  Sender: FDA-Public Use
  Company Number: FR-MYLANLABS-2020M1073488

PATIENT
  Age: 26 Year
  Sex: Female

DRUGS (2)
  1. JASMINELLE [Concomitant]
     Active Substance: DROSPIRENONE
     Dosage: UNK
  2. PANTOPRAZOLE [Suspect]
     Active Substance: PANTOPRAZOLE
     Indication: GASTRITIS
     Dosage: 2 DOSAGE FORM, QD
     Route: 048
     Dates: start: 20180719, end: 20180724

REACTIONS (4)
  - Urticaria [Recovered/Resolved]
  - Dysphagia [Recovered/Resolved]
  - Pruritus [Recovered/Resolved]
  - Face oedema [Recovered/Resolved]

NARRATIVE: CASE EVENT DATE: 20180724
